FAERS Safety Report 8163444-0 (Version None)
Quarter: 2012Q1

REPORT INFORMATION
  Report Type: 
  Country: None (occurrence: None)
  Receive Date: 20120224
  Receipt Date: 20120215
  Transmission Date: 20120608
  Serious: Yes (Other)
  Sender: FDA-Public Use
  Company Number: US-BAYER-2012-017115

PATIENT
  Age: 41 Year
  Sex: Female

DRUGS (4)
  1. ZOLOFT [Concomitant]
     Dosage: 100 MG, DAILY
     Route: 048
  2. LISINOPRIL [Concomitant]
     Dosage: 30 MG, DAILY
     Route: 048
  3. BUSPAR [Concomitant]
     Dosage: 10 MG, DAILY
     Route: 048
  4. YAZ [Suspect]

REACTIONS (1)
  - TRANSIENT ISCHAEMIC ATTACK [None]
